FAERS Safety Report 14778439 (Version 1)
Quarter: 2018Q2

REPORT INFORMATION
  Report Type: Spontaneous
  Country: US (occurrence: US)
  Receive Date: 20180419
  Receipt Date: 20180419
  Transmission Date: 20180711
  Serious: Yes (Death, Hospitalization)
  Sender: FDA-Public Use
  Company Number: US-BAYER-2018-023048

PATIENT
  Age: 76 Year
  Sex: Female

DRUGS (6)
  1. BAYER ASPIRIN [Suspect]
     Active Substance: ASPIRIN
     Indication: CEREBROVASCULAR ACCIDENT
  2. BAYER ASPIRIN [Suspect]
     Active Substance: ASPIRIN
     Indication: ATRIAL THROMBOSIS
     Dosage: 81 MG, QD
     Route: 048
     Dates: end: 201607
  3. XARELTO [Suspect]
     Active Substance: RIVAROXABAN
     Indication: CEREBROVASCULAR ACCIDENT PROPHYLAXIS
     Dosage: UNK
     Route: 048
     Dates: start: 20150901, end: 20160201
  4. XARELTO [Suspect]
     Active Substance: RIVAROXABAN
     Indication: ATRIAL FIBRILLATION
  5. XARELTO [Suspect]
     Active Substance: RIVAROXABAN
     Indication: THROMBOSIS PROPHYLAXIS
     Dosage: UNK
     Route: 048
     Dates: start: 20160506, end: 20160709
  6. XARELTO [Suspect]
     Active Substance: RIVAROXABAN
     Indication: ATRIAL THROMBOSIS

REACTIONS (3)
  - Coagulopathy [Recovering/Resolving]
  - Haematoma [Recovering/Resolving]
  - Small intestinal haemorrhage [Recovering/Resolving]

NARRATIVE: CASE EVENT DATE: 201605
